FAERS Safety Report 25455894 (Version 4)
Quarter: 2025Q4

REPORT INFORMATION
  Report Type: Report from Study
  Country: US (occurrence: US)
  Receive Date: 20250619
  Receipt Date: 20251208
  Transmission Date: 20260117
  Serious: Yes (Hospitalization)
  Sender: ROCHE
  Company Number: US-ROCHE-3419755

PATIENT
  Age: 52 Year
  Sex: Female

DRUGS (19)
  1. OCRELIZUMAB [Suspect]
     Active Substance: OCRELIZUMAB
     Indication: Multiple sclerosis
     Dosage: DATE OF SECOND ADMINISTRATION 23/DEC/2020
     Route: 065
     Dates: start: 20201210, end: 20211216
  2. OCRELIZUMAB [Suspect]
     Active Substance: OCRELIZUMAB
     Route: 050
     Dates: start: 20211216
  3. CHOLECALCIFEROL [Concomitant]
     Active Substance: CHOLECALCIFEROL
  4. MAGNESIUM OXIDE [Concomitant]
     Active Substance: MAGNESIUM OXIDE
     Dates: start: 20181129
  5. TRAMADOL [Concomitant]
     Active Substance: TRAMADOL
  6. HYDROCORTISONE [Concomitant]
     Active Substance: HYDROCORTISONE
     Indication: Rash
     Dates: start: 20210707, end: 20230530
  7. OMEPRAZOLE [Concomitant]
     Active Substance: OMEPRAZOLE
     Dates: start: 20210706
  8. EVUSHELD [Concomitant]
     Active Substance: CILGAVIMAB\TIXAGEVIMAB
     Dates: start: 20220624, end: 20230424
  9. OXCARBAZEPINE [Concomitant]
     Active Substance: OXCARBAZEPINE
     Dates: start: 20220624
  10. GABAPENTIN [Concomitant]
     Active Substance: GABAPENTIN
     Dates: start: 20220718
  11. INDOMETHACIN [Concomitant]
     Active Substance: INDOMETHACIN
     Dates: start: 20210317, end: 20230530
  12. FERROUS SULFATE [Concomitant]
     Active Substance: FERROUS SULFATE
     Dates: start: 20230516
  13. METHYLCOBALAMIN [Concomitant]
     Active Substance: METHYLCOBALAMIN
     Dates: start: 20230516
  14. IBUPROFEN [Concomitant]
     Active Substance: IBUPROFEN
  15. PROMETHAZINE [Concomitant]
     Active Substance: PROMETHAZINE HYDROCHLORIDE
     Indication: Acute sinusitis
     Dates: start: 20231111, end: 20231118
  16. PREDNISONE [Concomitant]
     Active Substance: PREDNISONE
     Indication: Acute sinusitis
     Dates: start: 20231111, end: 20231116
  17. Amoxicillin-pot clavulanate (AUGMENTIN) [Concomitant]
     Indication: Bacterial infection
     Dates: start: 20250506, end: 20250516
  18. CYCLOBENZAPRINE [Concomitant]
     Active Substance: CYCLOBENZAPRINE
     Dates: start: 20241224
  19. FLONASE [Concomitant]
     Active Substance: FLUTICASONE PROPIONATE
     Indication: Ear pain
     Dates: start: 20241126

REACTIONS (1)
  - Pulmonary embolism [Recovered/Resolved]

NARRATIVE: CASE EVENT DATE: 20230422
